FAERS Safety Report 17993072 (Version 1)
Quarter: 2020Q3

REPORT INFORMATION
  Report Type: Spontaneous
  Country: DE (occurrence: DE)
  Receive Date: 20200708
  Receipt Date: 20200708
  Transmission Date: 20201103
  Serious: Yes (Other)
  Sender: FDA-Public Use
  Company Number: DE-AUROBINDO-AUR-APL-2020-033851

PATIENT
  Age: 56 Year
  Sex: Male

DRUGS (2)
  1. ZOLPIDEM [Suspect]
     Active Substance: ZOLPIDEM TARTRATE
     Indication: PRODUCT USED FOR UNKNOWN INDICATION
     Dosage: INADEQUATE DOSING
     Route: 065
  2. DOXEPIN RATIOPHARM [Suspect]
     Active Substance: DOXEPIN
     Indication: DEPRESSION
     Dosage: 350 MILLIGRAM DAILY; FOR YEARS
     Route: 048

REACTIONS (8)
  - Depressed mood [Not Recovered/Not Resolved]
  - Muscle tightness [Not Recovered/Not Resolved]
  - Vision blurred [Not Recovered/Not Resolved]
  - Fatigue [Not Recovered/Not Resolved]
  - Dizziness [Not Recovered/Not Resolved]
  - Prescribed overdose [Unknown]
  - Mania [Not Recovered/Not Resolved]
  - Presyncope [Not Recovered/Not Resolved]
